FAERS Safety Report 21598072 (Version 2)
Quarter: 2022Q4

REPORT INFORMATION
  Report Type: Report from Study
  Country: US (occurrence: US)
  Receive Date: 20221115
  Receipt Date: 20221122
  Transmission Date: 20230112
  Serious: Yes (Hospitalization, Other)
  Sender: FDA-Public Use
  Company Number: US-ABBVIE-4199258

PATIENT
  Sex: Female

DRUGS (2)
  1. HUMIRA [Suspect]
     Active Substance: ADALIMUMAB
     Indication: Crohn^s disease
     Dosage: STRENGTH: 40 MG
     Route: 058
  2. HUMIRA [Suspect]
     Active Substance: ADALIMUMAB
     Dosage: STRENGTH 40 MILLIGRAM
     Route: 058

REACTIONS (7)
  - Small intestinal obstruction [Recovered/Resolved]
  - Psoriasis [Unknown]
  - Cholecystectomy [Unknown]
  - Malaise [Unknown]
  - Drug ineffective [Unknown]
  - Malaise [Unknown]
  - Haematochezia [Unknown]

NARRATIVE: CASE EVENT DATE: 20210101
